FAERS Safety Report 4502104-1 (Version None)
Quarter: 2004Q4

REPORT INFORMATION
  Report Type: 
  Country: None (occurrence: None)
  Receive Date: 20041116
  Receipt Date: 20041105
  Transmission Date: 20050328
  Serious: Yes (Hospitalization)
  Sender: FDA-Public Use
  Company Number: BE-JNJFOC-20041006180

PATIENT
  Age: 47 Year
  Sex: Female

DRUGS (13)
  1. PROPULSID [Suspect]
     Route: 049
     Dates: start: 20031023, end: 20041001
  2. LACTULOSE [Concomitant]
  3. PROZAC [Concomitant]
  4. XANAX [Concomitant]
  5. UNI-TRANXENE [Concomitant]
  6. ZESTRIL [Concomitant]
  7. PLAVIX [Concomitant]
  8. LESCOL [Concomitant]
  9. PARIET [Concomitant]
  10. CALCIUM SANDOZ [Concomitant]
  11. CALCIUM SANDOZ [Concomitant]
  12. SERTRALINE HCL [Concomitant]
  13. RISPERDAL [Concomitant]

REACTIONS (1)
  - MENTAL DISORDER [None]
